FAERS Safety Report 9926517 (Version 1)
Quarter: 2014Q1

REPORT INFORMATION
  Report Type: Spontaneous
  Country: US (occurrence: US)
  Receive Date: 20140226
  Receipt Date: 20140226
  Transmission Date: 20141002
  Serious: Yes (Other)
  Sender: FDA-Public Use
  Company Number: US-AMGEN-USASP2013073143

PATIENT
  Age: 67 Year
  Sex: Male

DRUGS (1)
  1. ENBREL [Suspect]
     Indication: PSORIASIS
     Dosage: UNK, TAKES PERIODICALLY.
     Route: 065
     Dates: start: 20130601

REACTIONS (1)
  - Squamous cell carcinoma of skin [Not Recovered/Not Resolved]
